FAERS Safety Report 4378560-9 (Version None)
Quarter: 2004Q2

REPORT INFORMATION
  Report Type: 
  Country: None (occurrence: None)
  Receive Date: 20040616
  Receipt Date: 20040604
  Transmission Date: 20050107
  Serious: Yes (Death)
  Sender: FDA-Public Use
  Company Number: 2004/02311

PATIENT
  Age: 75 Year
  Sex: Male

DRUGS (1)
  1. TAGAMET [Suspect]
     Dates: start: 20020401

REACTIONS (4)
  - DEATH [None]
  - MULTI-ORGAN FAILURE [None]
  - RENAL FAILURE ACUTE [None]
  - RHABDOMYOLYSIS [None]
